FAERS Safety Report 15123587 (Version 1)
Quarter: 2018Q3

REPORT INFORMATION
  Report Type: Spontaneous
  Country: FR (occurrence: FR)
  Receive Date: 20180710
  Receipt Date: 20180710
  Transmission Date: 20181010
  Serious: Yes (Hospitalization)
  Sender: FDA-Public Use
  Company Number: FR-ROCHE-2151021

PATIENT
  Age: 81 Year
  Sex: Male
  Weight: 75 kg

DRUGS (10)
  1. ZELBORAF [Suspect]
     Active Substance: VEMURAFENIB
     Indication: METASTATIC MALIGNANT MELANOMA
     Route: 048
  2. HUMALOG [Concomitant]
     Active Substance: INSULIN LISPRO
     Route: 065
  3. SILODOSINE [Concomitant]
     Active Substance: SILODOSIN
     Route: 048
  4. INEXIUM [Concomitant]
     Active Substance: ESOMEPRAZOLE
     Route: 048
  5. MONOPROST [Concomitant]
     Active Substance: LATANOPROST
     Route: 065
  6. LASILIX [Concomitant]
     Active Substance: FUROSEMIDE
     Route: 048
  7. ROSUVASTATINE [Concomitant]
     Active Substance: ROSUVASTATIN
     Route: 048
  8. DOLIPRANE [Concomitant]
     Active Substance: ACETAMINOPHEN
     Route: 048
  9. COTELLIC [Suspect]
     Active Substance: COBIMETINIB
     Indication: METASTATIC MALIGNANT MELANOMA
     Route: 048
  10. METFORMINE [Concomitant]
     Active Substance: METFORMIN HYDROCHLORIDE
     Route: 048

REACTIONS (3)
  - Electrocardiogram QT prolonged [Recovered/Resolved]
  - Cardiomyopathy [Recovered/Resolved]
  - Ejection fraction decreased [Recovered/Resolved]

NARRATIVE: CASE EVENT DATE: 20170726
